FAERS Safety Report 9361301 (Version 1)
Quarter: 2013Q2

REPORT INFORMATION
  Report Type: Report from Study
  Country: US (occurrence: US)
  Receive Date: 20130621
  Receipt Date: 20130621
  Transmission Date: 20140414
  Serious: Yes (Death)
  Sender: FDA-Public Use
  Company Number: US-ACTELION-A-NJ2013-84809

PATIENT
  Age: 57 Year
  Sex: Female

DRUGS (4)
  1. TRACLEER [Suspect]
     Indication: PULMONARY ARTERIAL HYPERTENSION
     Dosage: UNK
     Route: 048
     Dates: end: 20130508
  2. SILDENAFIL [Concomitant]
  3. BUMETANIDE [Concomitant]
  4. METOLAZONE [Concomitant]

REACTIONS (1)
  - Death [Fatal]
